FAERS Safety Report 5980375-2 (Version None)
Quarter: 2008Q4

REPORT INFORMATION
  Report Type: 
  Country: None (occurrence: None)
  Receive Date: 20081205
  Receipt Date: 20071105
  Transmission Date: 20090506
  Serious: No
  Sender: FDA-Public Use
  Company Number: A0691408A

PATIENT
  Age: 68 Year
  Sex: Female

DRUGS (2)
  1. COMMIT [Suspect]
  2. CITRUCEL SUGAR-FREE SUSPENSION ORANGE [Suspect]

REACTIONS (2)
  - BLOOD GLUCOSE INCREASED [None]
  - INCREASED INSULIN REQUIREMENT [None]
